FAERS Safety Report 7784683-4 (Version None)
Quarter: 2011Q3

REPORT INFORMATION
  Report Type: 
  Country: None (occurrence: None)
  Receive Date: 20110928
  Receipt Date: 20110923
  Transmission Date: 20111222
  Serious: Yes (Disabling, Other)
  Sender: FDA-Public Use
  Company Number: US-ABBOTT-11P-163-0851144-00

PATIENT
  Sex: Male

DRUGS (2)
  1. HUMIRA [Suspect]
     Indication: RHEUMATOID ARTHRITIS
     Dates: start: 20110301, end: 20110401
  2. HUMIRA [Suspect]
     Dosage: FOR A FEW DOSES
     Dates: start: 20110101, end: 20110101

REACTIONS (5)
  - ACNE PUSTULAR [None]
  - HEARING IMPAIRED [None]
  - HIP SURGERY [None]
  - DEAFNESS BILATERAL [None]
  - CONVERSION DISORDER [None]
